FAERS Safety Report 9730855 (Version 3)
Quarter: 2014Q4

REPORT INFORMATION
  Report Type: Report from Study
  Country: RS (occurrence: RS)
  Receive Date: 20131203
  Receipt Date: 20141118
  Transmission Date: 20150529
  Serious: Yes (Life-Threatening, Hospitalization, Other)
  Sender: FDA-Public Use
  Company Number: RS-ROCHE-1264316

PATIENT
  Age: 50 Year
  Sex: Male

DRUGS (35)
  1. PREDNISONE. [Suspect]
     Active Substance: PREDNISONE
     Indication: DIFFUSE LARGE B-CELL LYMPHOMA
     Dosage: DATE OF MOST RECENT DOSE PRIOR TO AE ONSET : 17/AUG/2013
     Route: 048
     Dates: start: 20130813
  2. BLOOD TRANSFUSION [Concomitant]
     Active Substance: WHOLE BLOOD
     Indication: ANAEMIA
     Route: 065
     Dates: start: 20130726, end: 20131022
  3. FUROSEMIDE. [Concomitant]
     Active Substance: FUROSEMIDE
     Indication: OEDEMA
     Route: 065
     Dates: start: 20130912, end: 20130913
  4. OLIGOVIT [Concomitant]
     Indication: MALNUTRITION
  5. CEFTAZIDIM [Concomitant]
     Active Substance: CEFTAZIDIME
     Indication: PROPHYLAXIS
     Route: 065
     Dates: start: 20130831, end: 20130904
  6. MEROPENEM. [Concomitant]
     Active Substance: MEROPENEM
     Indication: NEUTROPENIA
     Route: 065
     Dates: start: 20130821, end: 20130822
  7. CIPROFLOXACIN. [Concomitant]
     Active Substance: CIPROFLOXACIN
     Route: 065
     Dates: start: 20130801, end: 20130819
  8. PANTOPRAZOLE SODIUM [Concomitant]
     Active Substance: PANTOPRAZOLE SODIUM
     Route: 065
     Dates: start: 20130802, end: 20131028
  9. RANITIDIN [Concomitant]
     Active Substance: RANITIDINE HYDROCHLORIDE
     Route: 065
     Dates: start: 20130911, end: 20130918
  10. NEUPOGEN [Concomitant]
     Active Substance: FILGRASTIM
     Route: 065
     Dates: start: 20130821, end: 20130822
  11. KYTRIL [Concomitant]
     Active Substance: GRANISETRON HYDROCHLORIDE
     Route: 065
     Dates: start: 20130813, end: 20130813
  12. OBINUTUZUMAB [Suspect]
     Active Substance: OBINUTUZUMAB
     Indication: DIFFUSE LARGE B-CELL LYMPHOMA
     Dosage: DOSE CONCENTRATION : 4MG/ML DATE OF MOST RECENT DOSE PRIOR TO EVENT: 13/AUG/2013
     Route: 042
     Dates: start: 20130813
  13. ALLOPURINOL. [Concomitant]
     Active Substance: ALLOPURINOL
     Route: 065
     Dates: start: 20130723, end: 20130901
  14. LEMOD SOLU [Concomitant]
     Route: 065
     Dates: start: 20130726, end: 20130812
  15. ALBUMINE [Concomitant]
     Route: 065
     Dates: start: 20130816, end: 20130816
  16. DOXORUBICIN [Suspect]
     Active Substance: DOXORUBICIN
     Indication: DIFFUSE LARGE B-CELL LYMPHOMA
     Dosage: DATE OF MOST RECENT DOSE PRIOR TO EVENT: 13/AUG/2013
     Route: 042
     Dates: start: 20130813
  17. FERRUM LEK (SERBIA) [Concomitant]
     Indication: ANAEMIA
     Route: 065
     Dates: start: 20130725, end: 20130819
  18. TRANEX [Concomitant]
     Active Substance: TRANEXAMIC ACID
     Indication: HAEMORRHAGE PROPHYLAXIS
     Route: 065
     Dates: start: 20130918, end: 20130920
  19. ALBUMINE [Concomitant]
     Indication: OEDEMA PERIPHERAL
     Route: 065
     Dates: start: 20130816, end: 20130816
  20. VITAMIN B1 [Concomitant]
     Active Substance: THIAMINE HYDROCHLORIDE
     Indication: MALNUTRITION
     Route: 065
     Dates: start: 20130912, end: 20130919
  21. VINCRISTINE [Suspect]
     Active Substance: VINCRISTINE
     Indication: DIFFUSE LARGE B-CELL LYMPHOMA
     Dosage: DATE OF MOST RECENT DOSE PRIOR TO EVENT: 13/AUG/2013
     Route: 042
     Dates: start: 20130813
  22. IMIPENEM AND CILASTATIN [Concomitant]
     Active Substance: CILASTATIN SODIUM\IMIPENEM
     Route: 065
     Dates: start: 20130916, end: 20130920
  23. TIENAM [Concomitant]
     Active Substance: CILASTATIN SODIUM\IMIPENEM
     Route: 065
     Dates: start: 20130916, end: 20130920
  24. SPIRONOLACTON [Concomitant]
     Active Substance: SPIRONOLACTONE
     Indication: OEDEMA
     Route: 065
     Dates: start: 20130914, end: 20130919
  25. OLIGOVIT [Concomitant]
     Indication: HYPOVITAMINOSIS
     Route: 065
     Dates: start: 20130913, end: 20130919
  26. ADENOSINE PHOSPHATE/BIOTIN/CARNITINE/FOLIC ACID/INOSITOL/INTRINSIC FAC [Concomitant]
     Indication: MALNUTRITION
     Dosage: REPORTED AS BEVIPLEX
     Route: 065
     Dates: start: 20130913, end: 20130919
  27. PARACETAMOL [Concomitant]
     Active Substance: ACETAMINOPHEN
     Indication: ABDOMINAL PAIN
     Route: 065
     Dates: start: 20130818, end: 20130818
  28. VITAMIN B6 [Concomitant]
     Active Substance: PYRIDOXINE HYDROCHLORIDE
     Indication: MALNUTRITION
     Route: 065
     Dates: start: 20130912, end: 20130919
  29. CYCLOPHOSPHAMIDE. [Suspect]
     Active Substance: CYCLOPHOSPHAMIDE
     Indication: DIFFUSE LARGE B-CELL LYMPHOMA
     Dosage: DATE OF MOST RECENT DOSE PRIOR TO EVENT: 13/AUG/2013
     Route: 042
     Dates: start: 20130813
  30. ALBUMINE [Concomitant]
     Indication: HYPOALBUMINAEMIA
     Route: 065
     Dates: start: 20130911, end: 20130916
  31. GLUCOSE [Concomitant]
     Active Substance: DEXTROSE
     Route: 065
     Dates: start: 20130911, end: 20130919
  32. CALCIUM CARBONATE. [Concomitant]
     Active Substance: CALCIUM CARBONATE
     Indication: HYPOCALCAEMIA
     Route: 065
     Dates: start: 20130914, end: 20130919
  33. NACL .9% [Concomitant]
     Route: 065
     Dates: start: 20130724, end: 201310
  34. FUROSEMIDE. [Concomitant]
     Active Substance: FUROSEMIDE
     Indication: HYPERKALAEMIA
     Route: 065
     Dates: start: 20130724, end: 20130724
  35. PARACETAMOL [Concomitant]
     Active Substance: ACETAMINOPHEN
     Indication: PROCEDURAL PAIN
     Route: 065
     Dates: start: 20130913, end: 20130913

REACTIONS (3)
  - Subileus [Recovered/Resolved]
  - Gastrointestinal haemorrhage [Recovered/Resolved]
  - Pneumoperitoneum [Recovered/Resolved]

NARRATIVE: CASE EVENT DATE: 20130819
